FAERS Safety Report 5082210-6 (Version None)
Quarter: 2006Q3

REPORT INFORMATION
  Report Type: 
  Country: None (occurrence: None)
  Receive Date: 20060814
  Receipt Date: 20060728
  Transmission Date: 20061208
  Serious: Yes (Death)
  Sender: FDA-Public Use
  Company Number: ACO_0254_2006

PATIENT
  Age: 57 Year
  Sex: Female

DRUGS (3)
  1. TIZANIDINE HCL [Suspect]
     Dosage: DF PO
     Route: 048
  2. DIAZEPAM [Suspect]
     Dosage: DF
  3. ETHANOL [Suspect]
     Dosage: DF PO
     Route: 048

REACTIONS (2)
  - COMPLETED SUICIDE [None]
  - DRUG TOXICITY [None]
